FAERS Safety Report 17239786 (Version 2)
Quarter: 2020Q1

REPORT INFORMATION
  Report Type: Spontaneous
  Country: ES (occurrence: ES)
  Receive Date: 20200106
  Receipt Date: 20200109
  Transmission Date: 20200409
  Serious: Yes (Life-Threatening)
  Sender: FDA-Public Use
  Company Number: ES-TEVA-2019-ES-1162388

PATIENT
  Age: 76 Year
  Sex: Male

DRUGS (1)
  1. LINEZOLID (1279A) [Suspect]
     Active Substance: LINEZOLID
     Dates: start: 20191108

REACTIONS (1)
  - Drug reaction with eosinophilia and systemic symptoms [Recovered/Resolved]

NARRATIVE: CASE EVENT DATE: 20191113
